FAERS Safety Report 15748962 (Version 1)
Quarter: 2018Q4

REPORT INFORMATION
  Report Type: Spontaneous
  Country: US (occurrence: US)
  Receive Date: 20181221
  Receipt Date: 20181221
  Transmission Date: 20190205
  Serious: No
  Sender: FDA-Public Use
  Company Number: US-RECKITT BENCKISER HEALTHCARE INT LIMITED-RB-91830-2018

PATIENT
  Age: 2 Year
  Sex: Female
  Weight: 10.88 kg

DRUGS (1)
  1. DELSYM [Suspect]
     Active Substance: DEXTROMETHORPHAN
     Indication: PRODUCT USED FOR UNKNOWN INDICATION
     Dosage: DRANK ABOUT HALF OF THE BOTTLE, SINGLE
     Route: 048
     Dates: start: 20181001

REACTIONS (2)
  - Accidental exposure to product by child [Unknown]
  - Overdose [Unknown]

NARRATIVE: CASE EVENT DATE: 20181001
